FAERS Safety Report 5811734-6 (Version None)
Quarter: 2008Q3

REPORT INFORMATION
  Report Type: 
  Country: None (occurrence: None)
  Receive Date: 20080716
  Receipt Date: 20080710
  Transmission Date: 20090109
  Serious: Yes (Other)
  Sender: FDA-Public Use
  Company Number: B0527037A

PATIENT
  Age: 49 Year
  Sex: Female
  Weight: 57 kg

DRUGS (6)
  1. LAPATINIB [Suspect]
     Dosage: 1250MG PER DAY
     Dates: start: 20080610, end: 20080617
  2. CAPECITABINE [Concomitant]
     Dosage: 2000MGM2 PER DAY
     Dates: start: 20080603
  3. ORAMORPH SR [Concomitant]
     Dosage: 30MG PER DAY
     Route: 048
     Dates: start: 20080409
  4. DEXAMETHASONE [Concomitant]
     Dosage: 8MG PER DAY
     Route: 048
     Dates: start: 20080319
  5. OMEPRAZOLE [Concomitant]
     Indication: PROPHYLAXIS
     Dosage: 20MG PER DAY
     Route: 048
     Dates: start: 20080319
  6. ZOLPIDEM [Concomitant]
     Indication: INSOMNIA
     Dosage: 10MG PER DAY
     Route: 048
     Dates: start: 20080516

REACTIONS (3)
  - ASTHENIA [None]
  - DIPLOPIA [None]
  - PALPITATIONS [None]
